FAERS Safety Report 14887637 (Version 2)
Quarter: 2021Q1

REPORT INFORMATION
  Report Type: Spontaneous
  Country: GB (occurrence: GB)
  Receive Date: 20180513
  Receipt Date: 20210114
  Transmission Date: 20210419
  Serious: Yes (Hospitalization, Disabling)
  Sender: FDA-Public Use
  Company Number: GB-SA-2018SA126122

PATIENT
  Age: 47 Year
  Sex: Female

DRUGS (34)
  1. HYDROCORTISONE. [Concomitant]
     Active Substance: HYDROCORTISONE
     Indication: PROPHYLAXIS
     Dosage: 300 MG, QW
     Route: 042
     Dates: start: 20151022, end: 20160222
  2. DOCETAXEL. [Suspect]
     Active Substance: DOCETAXEL
     Indication: HER2 POSITIVE BREAST CANCER
     Dosage: 132 MG (LOADING DOSE)
     Route: 042
     Dates: start: 20151022, end: 20151022
  3. TRASTUZUMAB. [Suspect]
     Active Substance: TRASTUZUMAB
     Indication: HER2 POSITIVE BREAST CANCER
     Dosage: 525 MG,UNK (LOADING DOSE)
     Route: 042
     Dates: start: 20151023, end: 20151023
  4. LETROZOLE. [Suspect]
     Active Substance: LETROZOLE
     Indication: HER2 POSITIVE BREAST CANCER
     Dosage: 2.5 MG, QD
     Route: 048
     Dates: start: 20160308, end: 20161123
  5. IRINOTECAN [Suspect]
     Active Substance: IRINOTECAN
     Indication: BREAST CANCER METASTATIC
     Dosage: 132 MG (LOADING DOSE)
     Route: 042
     Dates: start: 20151022, end: 20151022
  6. DEXAMETHASONE. [Concomitant]
     Active Substance: DEXAMETHASONE
     Indication: DISEASE PROGRESSION
     Dosage: 4 MG (0.5 DAY)
     Route: 048
     Dates: start: 20170809, end: 20170919
  7. DEXAMETHASONE. [Concomitant]
     Active Substance: DEXAMETHASONE
     Dosage: 8 MG
     Route: 048
     Dates: start: 20170809, end: 20170919
  8. MORPHINE SULPHATE [Concomitant]
     Active Substance: MORPHINE SULFATE
     Indication: PALLIATIVE CARE
     Dosage: 2.5 MG, PRN
     Route: 065
     Dates: start: 20170918, end: 20170920
  9. HYDROCORTISONE. [Concomitant]
     Active Substance: HYDROCORTISONE
     Dosage: 100 MG (0.33 W)
     Route: 042
     Dates: start: 20151022, end: 20160222
  10. FILGRASTIM [Concomitant]
     Active Substance: FILGRASTIM
     Dosage: 300 UG,UNK
     Route: 058
     Dates: start: 20151210, end: 20160305
  11. GLYCOPYRRONIUM [Concomitant]
     Active Substance: GLYCOPYRRONIUM
     Indication: PALLIATIVE CARE
     Dosage: 40 UG, PRN
     Route: 058
     Dates: start: 20170919, end: 20200920
  12. LANSOPRAZOLE. [Concomitant]
     Active Substance: LANSOPRAZOLE
     Indication: PROPHYLAXIS
     Dosage: 30 MG, QD
     Route: 048
     Dates: start: 20170728, end: 20170905
  13. TRASTUZUMAB. [Suspect]
     Active Substance: TRASTUZUMAB
     Dosage: 400 MG, Q3W
     Route: 042
     Dates: start: 20151120, end: 20161104
  14. PERTUZUMAB. [Suspect]
     Active Substance: PERTUZUMAB
     Indication: HER2 POSITIVE BREAST CANCER
     Dosage: 840 MG (LOADING DOSE)
     Route: 042
     Dates: start: 20151023, end: 20151023
  15. FILGRASTIM [Concomitant]
     Active Substance: FILGRASTIM
     Dosage: 300 UG
     Route: 058
     Dates: start: 20151120, end: 20151127
  16. HALOPERIDOL. [Concomitant]
     Active Substance: HALOPERIDOL
     Dosage: 1.5 MG, BID
     Route: 048
     Dates: start: 20170810, end: 20170919
  17. MIDAZOLAM. [Concomitant]
     Active Substance: MIDAZOLAM
     Indication: PALLIATIVE CARE
     Dosage: 2.5 MG, PRN
     Route: 058
     Dates: start: 20170918, end: 20170920
  18. DEXAMETHASONE. [Concomitant]
     Active Substance: DEXAMETHASONE
     Dosage: 16 MG
     Route: 048
     Dates: start: 20170803, end: 20170809
  19. DEXAMETHASONE. [Concomitant]
     Active Substance: DEXAMETHASONE
     Dosage: 8 MG, BID (TWICE A DAY FOR 3 DAYS STARTING DAY BEFORE CHEMO)(0.5 DAY)
     Route: 048
     Dates: start: 20170803, end: 20170809
  20. FILGRASTIM [Concomitant]
     Active Substance: FILGRASTIM
     Dosage: 30 UG, QD
     Route: 058
     Dates: start: 20151120, end: 20151127
  21. FILGRASTIM [Concomitant]
     Active Substance: FILGRASTIM
     Indication: PROPHYLAXIS
     Dosage: 300 UG, QD
     Route: 058
     Dates: start: 20151120, end: 20151127
  22. FILGRASTIM [Concomitant]
     Active Substance: FILGRASTIM
     Dosage: 30 UG
     Route: 058
  23. TRASTUZUMAB EMTANSINE [Suspect]
     Active Substance: ADO-TRASTUZUMAB EMTANSINE
     Indication: BREAST CANCER METASTATIC
     Dosage: 240 MG, TIW
     Route: 042
     Dates: start: 20161201, end: 20170302
  24. TRASTUZUMAB EMTANSINE [Suspect]
     Active Substance: ADO-TRASTUZUMAB EMTANSINE
     Indication: HER2 POSITIVE BREAST CANCER
     Dosage: 230 MG, TIW
     Route: 042
     Dates: start: 20170330, end: 20170608
  25. DEXAMETHASONE. [Concomitant]
     Active Substance: DEXAMETHASONE
     Indication: PROPHYLAXIS
     Dosage: 8 MG, BID (TWICE A DAY FOR 3 DAYS STARTING DAY BEFORE CHEMO)
     Route: 048
     Dates: start: 20151210, end: 20160222
  26. DEXAMETHASONE. [Concomitant]
     Active Substance: DEXAMETHASONE
     Indication: METASTASES TO CENTRAL NERVOUS SYSTEM
     Dosage: 8 MG (0.5 DAY)
     Route: 048
     Dates: start: 20170803, end: 20170809
  27. DEXAMETHASONE. [Concomitant]
     Active Substance: DEXAMETHASONE
     Dosage: 2 MG, QD
     Route: 048
     Dates: start: 20170726, end: 20170803
  28. HALOPERIDOL. [Concomitant]
     Active Substance: HALOPERIDOL
     Indication: PALLIATIVE CARE
     Dosage: 1.5 MG, PRN
     Route: 058
     Dates: start: 20170919, end: 20170920
  29. DOCETAXEL. [Suspect]
     Active Substance: DOCETAXEL
     Indication: BREAST CANCER METASTATIC
     Dosage: 108 MG, Q3W
     Route: 042
     Dates: start: 20151120, end: 20160222
  30. IRINOTECAN [Suspect]
     Active Substance: IRINOTECAN
     Indication: HER2 POSITIVE BREAST CANCER
     Dosage: 108 MG, Q3W
     Route: 042
     Dates: start: 20151120, end: 20160222
  31. PERTUZUMAB. [Suspect]
     Active Substance: PERTUZUMAB
     Indication: BREAST CANCER METASTATIC
     Dosage: 420 MG, Q3W
     Route: 042
     Dates: start: 20151120, end: 20161104
  32. ZOLEDRONIC ACID [Concomitant]
     Active Substance: ZOLEDRONIC ACID
     Indication: PRODUCT USED FOR UNKNOWN INDICATION
     Dosage: 4 MG, QM
     Route: 042
     Dates: start: 20151022, end: 20170713
  33. CHLORPHENAMINE [Concomitant]
     Active Substance: CHLORPHENIRAMINE MALEATE
     Indication: PROPHYLAXIS
     Dosage: 30 MG, QW
     Route: 042
     Dates: start: 20151022, end: 20160222
  34. CHLORPHENAMINE [Concomitant]
     Active Substance: CHLORPHENIRAMINE MALEATE
     Dosage: 10 MG (0.33 WEEK)
     Route: 042
     Dates: start: 20151022, end: 20160222

REACTIONS (10)
  - Abnormal sensation in eye [Not Recovered/Not Resolved]
  - Oropharyngeal pain [Recovered/Resolved]
  - Depression [Not Recovered/Not Resolved]
  - Nasopharyngitis [Recovered/Resolved]
  - Migraine [Not Recovered/Not Resolved]
  - Asthenia [Recovered/Resolved]
  - Dyschezia [Not Recovered/Not Resolved]
  - Hypocalcaemia [Not Recovered/Not Resolved]
  - Lethargy [Not Recovered/Not Resolved]
  - Decreased appetite [Recovered/Resolved]

NARRATIVE: CASE EVENT DATE: 20151229
